FAERS Safety Report 18657557 (Version 1)
Quarter: 2020Q4

REPORT INFORMATION
  Report Type: Spontaneous
  Country: US (occurrence: US)
  Receive Date: 20201224
  Receipt Date: 20201224
  Transmission Date: 20210114
  Serious: Yes (Death, Other)
  Sender: FDA-Public Use
  Company Number: US-009507513-2012USA008448

PATIENT
  Age: 38 Year
  Sex: Male

DRUGS (6)
  1. ATENOLOL. [Suspect]
     Active Substance: ATENOLOL
     Dosage: UNK
     Route: 048
  2. COZAAR [Suspect]
     Active Substance: LOSARTAN POTASSIUM
     Dosage: UNK
     Route: 048
  3. CALCITRIOL. [Suspect]
     Active Substance: CALCITRIOL
     Dosage: UNK
     Route: 048
  4. LEVOTHYROXINE SODIUM. [Suspect]
     Active Substance: LEVOTHYROXINE SODIUM
     Dosage: UNK
     Route: 048
  5. ACETAMINOPHEN. [Suspect]
     Active Substance: ACETAMINOPHEN
     Dosage: UNK
     Route: 048
  6. NIFEDIPINE. [Suspect]
     Active Substance: NIFEDIPINE
     Dosage: EXTENDED RELEASE
     Route: 048

REACTIONS (1)
  - Suspected suicide [Fatal]
